FAERS Safety Report 6912989-7 (Version None)
Quarter: 2010Q3

REPORT INFORMATION
  Report Type: 
  Country: None (occurrence: None)
  Receive Date: 20100806
  Receipt Date: 20090519
  Transmission Date: 20110219
  Serious: No
  Sender: FDA-Public Use
  Company Number: US-PFIZER INC-2009190117

PATIENT
  Sex: Female

DRUGS (1)
  1. DETROL LA [Suspect]
     Dosage: 4 MG, 1X/DAY

REACTIONS (4)
  - ABDOMINAL PAIN UPPER [None]
  - DIARRHOEA [None]
  - ERYTHEMA [None]
  - URTICARIA [None]
